FAERS Safety Report 15604831 (Version 7)
Quarter: 2019Q3

REPORT INFORMATION
  Report Type: Report from Study
  Country: US (occurrence: US)
  Receive Date: 20181111
  Receipt Date: 20190704
  Transmission Date: 20191004
  Serious: Yes (Hospitalization, Other)
  Sender: FDA-Public Use
  Company Number: US-AMGEN-USASP2018156744

PATIENT
  Age: 75 Year
  Sex: Male

DRUGS (6)
  1. APPLE CIDER VINEGAR [Concomitant]
     Active Substance: APPLE CIDER VINEGAR
     Dosage: UNK
  2. REPATHA [Suspect]
     Active Substance: EVOLOCUMAB
     Indication: HYPERCHOLESTEROLAEMIA
  3. GABAPENTIN. [Concomitant]
     Active Substance: GABAPENTIN
  4. REPATHA [Suspect]
     Active Substance: EVOLOCUMAB
     Indication: TYPE IIA HYPERLIPIDAEMIA
  5. CRANBERRY. [Concomitant]
     Active Substance: CRANBERRY
     Dosage: UNK
  6. REPATHA [Suspect]
     Active Substance: EVOLOCUMAB
     Indication: BLOOD CHOLESTEROL INCREASED
     Dosage: 140 MG, Q2WK
     Route: 065
     Dates: start: 20181031

REACTIONS (12)
  - Therapeutic response unexpected [Recovering/Resolving]
  - Pneumonia [Unknown]
  - Feeling hot [Unknown]
  - Trichorrhexis [Unknown]
  - Dysgeusia [Unknown]
  - Atrial fibrillation [Unknown]
  - Sinusitis [Unknown]
  - Gait inability [Unknown]
  - Staphylococcal infection [Unknown]
  - Unevaluable event [Unknown]
  - Cardiac aneurysm [Unknown]
  - Cardiac valve disease [Unknown]

NARRATIVE: CASE EVENT DATE: 2018
